FAERS Safety Report 17306950 (Version 1)
Quarter: 2020Q1

REPORT INFORMATION
  Report Type: Spontaneous
  Country: US (occurrence: US)
  Receive Date: 20200123
  Receipt Date: 20200123
  Transmission Date: 20200409
  Serious: Yes (Death, Life-Threatening, Hospitalization, Other)
  Sender: FDA-Public Use
  Company Number: US-ACCORD-170403

PATIENT
  Age: 49 Year
  Sex: Male

DRUGS (4)
  1. FLUCONAZOLE. [Concomitant]
     Active Substance: FLUCONAZOLE
     Indication: ANTIFUNGAL PROPHYLAXIS
  2. TACROLIMUS. [Suspect]
     Active Substance: TACROLIMUS
     Indication: IMMUNOSUPPRESSANT DRUG THERAPY
  3. PREDNISONE. [Suspect]
     Active Substance: PREDNISONE
     Indication: IMMUNOSUPPRESSANT DRUG THERAPY
  4. MYCOPHENOLATE MOFETIL/MYCOPHENOLATE SODIUM/MYCOPHENOLIC ACID [Suspect]
     Active Substance: MYCOPHENOLIC ACID
     Indication: IMMUNOSUPPRESSANT DRUG THERAPY

REACTIONS (10)
  - Enterococcal infection [Fatal]
  - Acute respiratory distress syndrome [Fatal]
  - Metabolic acidosis [Fatal]
  - Septic shock [Fatal]
  - Atelectasis [Fatal]
  - Mucormycosis [Fatal]
  - Acinetobacter infection [Fatal]
  - Cardiac arrest [Fatal]
  - Acute kidney injury [Fatal]
  - Skin necrosis [Unknown]
